FAERS Safety Report 14419136 (Version 5)
Quarter: 2018Q2

REPORT INFORMATION
  Report Type: Spontaneous
  Country: CA (occurrence: CA)
  Receive Date: 20180122
  Receipt Date: 20180411
  Transmission Date: 20180711
  Serious: Yes (Other)
  Sender: FDA-Public Use
  Company Number: CA-CELLTRION INC.-2017CA013006

PATIENT

DRUGS (12)
  1. PREDNISONE. [Suspect]
     Active Substance: PREDNISONE
     Indication: PRODUCT USED FOR UNKNOWN INDICATION
     Dosage: 40 MG
     Route: 065
  2. METHOTREXATE. [Concomitant]
     Active Substance: METHOTREXATE
     Dosage: 15 MG
  3. INFLECTRA [Suspect]
     Active Substance: INFLIXIMAB-DYYB
     Dosage: 400 MG, CYCLIC AT 0,2 WEEKS, THEN EVERY 4 WEEKS
     Route: 042
     Dates: start: 20171211
  4. INFLECTRA [Suspect]
     Active Substance: INFLIXIMAB-DYYB
     Dosage: 600 MG, CYCLIC (EVERY 0,2 WEEKS, THEN EVERY 4 WEEKS)
     Route: 042
     Dates: start: 20180123
  5. INFLECTRA [Suspect]
     Active Substance: INFLIXIMAB-DYYB
     Indication: COLITIS ULCERATIVE
     Dosage: 400 MG, CYCLIC AT 0,2 WEEKS, THEN EVERY 4 WEEKS
     Route: 042
     Dates: start: 20170905, end: 20180110
  6. INFLECTRA [Suspect]
     Active Substance: INFLIXIMAB-DYYB
     Dosage: 600 MG, CYCLIC (EVERY 0,2 WEEKS, THEN EVERY 4 WEEKS)
     Route: 042
     Dates: start: 20180206
  7. INFLECTRA [Suspect]
     Active Substance: INFLIXIMAB-DYYB
     Dosage: 400 MG, CYCLIC AT 0,2 WEEKS, THEN EVERY 4 WEEKS
     Route: 042
     Dates: start: 20171101
  8. INFLECTRA [Suspect]
     Active Substance: INFLIXIMAB-DYYB
     Dosage: 600 MG, CYCLIC (EVERY 0,2 WEEKS, THEN EVERY 4 WEEKS)
     Route: 042
     Dates: start: 20180313
  9. PREDNISONE. [Suspect]
     Active Substance: PREDNISONE
     Dosage: 15 MG
     Route: 065
  10. INFLECTRA [Suspect]
     Active Substance: INFLIXIMAB-DYYB
     Dosage: 600 MG, CYCLIC (EVERY 0,2 WEEKS, THEN EVERY 4 WEEKS)
     Route: 042
     Dates: start: 20180123
  11. TRAMADOL. [Concomitant]
     Active Substance: TRAMADOL
     Dosage: UNK, PRN
     Route: 065
  12. INFLECTRA [Suspect]
     Active Substance: INFLIXIMAB-DYYB
     Dosage: 400 MG, CYCLIC (EVERY 0,2,6 WEEKS, THEN EVERY 4 WEEKS)
     Route: 042
     Dates: start: 20180110

REACTIONS (8)
  - Rectal haemorrhage [Unknown]
  - Product use issue [Unknown]
  - Weight fluctuation [Unknown]
  - Weight decreased [Unknown]
  - Drug effect incomplete [Not Recovered/Not Resolved]
  - Heart rate irregular [Unknown]
  - Product use issue [Unknown]
  - Drug ineffective [Unknown]

NARRATIVE: CASE EVENT DATE: 2017
